FAERS Safety Report 6661407-5 (Version None)
Quarter: 2010Q1

REPORT INFORMATION
  Report Type: 
  Country: None (occurrence: None)
  Receive Date: 20100331
  Receipt Date: 20100326
  Transmission Date: 20100710
  Serious: Yes (Death, Hospitalization, Other)
  Sender: FDA-Public Use
  Company Number: PHHY2010EC18836

PATIENT
  Age: 74 Year
  Sex: Male

DRUGS (1)
  1. DIOVAN [Suspect]
     Indication: HYPERTENSION
     Dosage: 1 DF, QD
     Route: 048
     Dates: start: 20091101, end: 20100201

REACTIONS (5)
  - CARDIAC ARREST [None]
  - DYSPHAGIA [None]
  - GASTROINTESTINAL TUBE INSERTION [None]
  - MALNUTRITION [None]
  - OESOPHAGEAL CANCER METASTATIC [None]
